FAERS Safety Report 7391406-X (Version None)
Quarter: 2011Q2

REPORT INFORMATION
  Report Type: 
  Country: None (occurrence: None)
  Receive Date: 20110404
  Receipt Date: 20110325
  Transmission Date: 20111010
  Serious: Yes (Other)
  Sender: FDA-Public Use
  Company Number: JP-NAPPMUNDI-MAG-2011-0001478

PATIENT
  Sex: Female

DRUGS (27)
  1. OXYCODONE HCL [Suspect]
     Dosage: 40 MG, DAILY
     Route: 048
     Dates: start: 20101217, end: 20101223
  2. LOXONIN [Concomitant]
     Indication: CANCER PAIN
     Dosage: UNK
     Route: 048
  3. OXYCODONE HCL [Suspect]
     Indication: CANCER PAIN
     Dosage: 60 MG, DAILY
     Route: 048
     Dates: start: 20101210, end: 20101217
  4. OXYCODONE HCL [Suspect]
     Dosage: 5 MG, DAILY
     Dates: start: 20101223, end: 20110202
  5. DECADRON [Concomitant]
     Dosage: UNK
     Route: 065
     Dates: start: 20101231, end: 20101231
  6. CISPLATIN [Concomitant]
     Indication: MALIGNANT NEOPLASM OF RENAL PELVIS
     Dosage: UNK
     Route: 065
     Dates: start: 20101218, end: 20101218
  7. PENTCILLIN [Concomitant]
     Indication: PYELONEPHRITIS
     Dosage: UNK
     Route: 065
     Dates: start: 20101211, end: 20101226
  8. GEMZAR [Concomitant]
     Indication: MALIGNANT NEOPLASM OF RENAL PELVIS
     Dosage: UNK
     Route: 065
     Dates: start: 20101217, end: 20101217
  9. POLAPREZINC [Concomitant]
     Indication: GASTRIC ULCER
     Dosage: UNK
     Route: 065
     Dates: start: 20110207
  10. MEXITIL [Concomitant]
     Indication: CANCER PAIN
     Dosage: UNK
     Route: 048
     Dates: end: 20101211
  11. LAC-B [Concomitant]
     Indication: PROPHYLAXIS
     Dosage: UNK
     Route: 048
     Dates: start: 20101222
  12. OXYCODONE HCL [Suspect]
     Dosage: 10 MG, UNK
     Route: 048
     Dates: start: 20110202
  13. OXYCODONE HCL [Suspect]
     Dosage: 2.5 MG, DAILY
     Route: 048
     Dates: start: 20110202
  14. AMOBAN [Concomitant]
     Dosage: UNK
     Route: 048
  15. LYRICA [Concomitant]
     Indication: CANCER PAIN
     Dosage: UNK
     Route: 048
     Dates: start: 20101211
  16. ALOSENN                            /00476901/ [Concomitant]
     Indication: PROPHYLAXIS
     Dosage: UNK
     Route: 048
     Dates: start: 20101214
  17. GRAN [Concomitant]
     Indication: MALIGNANT NEOPLASM OF RENAL PELVIS
     Dosage: UNK
     Route: 065
     Dates: start: 20110104, end: 20110106
  18. OXYCODONE HCL [Suspect]
     Dosage: 10 MG, DAILY
     Dates: start: 20101213, end: 20101223
  19. MAGLAX [Concomitant]
     Indication: PROPHYLAXIS
     Dosage: UNK
     Route: 048
     Dates: start: 20101215
  20. ALOXI [Concomitant]
     Indication: MALIGNANT NEOPLASM OF RENAL PELVIS
     Dosage: UNK
     Route: 065
     Dates: start: 20101218, end: 20101218
  21. OXYCODONE HCL [Suspect]
     Dosage: 40 MG, DAILY
     Route: 048
     Dates: start: 20101202, end: 20101210
  22. OXYCODONE HCL [Suspect]
     Dosage: 20 MG, DAILY
     Route: 048
     Dates: start: 20101223, end: 20110202
  23. OXYCODONE HCL [Suspect]
     Indication: CANCER PAIN
     Dosage: 5 MG, DAILY
     Route: 048
     Dates: start: 20101202, end: 20101213
  24. GEMZAR [Concomitant]
     Dosage: UNK
     Route: 065
     Dates: start: 20101224, end: 20101224
  25. GEMZAR [Concomitant]
     Dosage: UNK
     Route: 065
     Dates: start: 20101231, end: 20101231
  26. DECADRON [Concomitant]
     Indication: MALIGNANT NEOPLASM OF RENAL PELVIS
     Dosage: UNK
     Route: 065
     Dates: start: 20101217
  27. DECADRON [Concomitant]
     Dosage: UNK
     Route: 065
     Dates: start: 20101224, end: 20101224

REACTIONS (6)
  - PYELONEPHRITIS [None]
  - DELIRIUM [None]
  - NEUROGENIC BLADDER [None]
  - GASTRIC ULCER [None]
  - HYPERKALAEMIA [None]
  - CYSTITIS [None]
